FAERS Safety Report 5962288-5 (Version None)
Quarter: 2008Q4

REPORT INFORMATION
  Report Type: 
  Country: None (occurrence: None)
  Receive Date: 20081121
  Receipt Date: 20081113
  Transmission Date: 20090506
  Serious: Yes (Hospitalization)
  Sender: FDA-Public Use
  Company Number: US-TYCO HEALTHCARE/MALLINCKRODT-T200801954

PATIENT

DRUGS (5)
  1. METHADONE HCL [Suspect]
     Indication: PAIN
     Dosage: 5 TABS, TID
     Route: 048
     Dates: start: 20060101
  2. PAXIL [Concomitant]
     Indication: DEPRESSION
     Dosage: 40 MG, QD
     Route: 048
     Dates: start: 20080501
  3. SYNTHROID [Concomitant]
     Indication: HYPOTHYROIDISM
     Dosage: 88 UG, QD
     Route: 048
  4. XANAX [Concomitant]
     Indication: ANXIETY
     Dosage: UNK, UNK
     Dates: start: 20040101
  5. MULTI-VITAMINS [Concomitant]
     Indication: SUPPLEMENTATION THERAPY
     Dosage: 1 UNK, QD
     Route: 048

REACTIONS (3)
  - CONSTIPATION [None]
  - DRUG EFFECT DECREASED [None]
  - INTESTINAL OBSTRUCTION [None]
